FAERS Safety Report 16530617 (Version 1)
Quarter: 2019Q3

REPORT INFORMATION
  Report Type: Spontaneous
  Country: GB (occurrence: GB)
  Receive Date: 20190704
  Receipt Date: 20190704
  Transmission Date: 20191004
  Serious: Yes (Life-Threatening, Other)
  Sender: FDA-Public Use
  Company Number: GB-TEVA-2019-GB-1072612

PATIENT
  Age: 60 Year
  Sex: Female
  Weight: 59.87 kg

DRUGS (1)
  1. MORPHINE [Suspect]
     Active Substance: MORPHINE
     Indication: POSTOPERATIVE ANALGESIA
     Route: 051

REACTIONS (2)
  - Blood pressure decreased [Recovered/Resolved]
  - Circulatory collapse [Recovered/Resolved]
